FAERS Safety Report 6562046 (Version 1)
Quarter: 2020Q3

REPORT INFORMATION
  Report Type: Report from Study
  Country: CH (occurrence: CH)
  Receive Date: 20080226
  Receipt Date: 20080226
  Transmission Date: 20201104
  Serious: Yes (Other)
  Sender: FDA-Public Use
  Company Number: CH-JNJFOC-20080203671

PATIENT
  Age: 51 Year
  Sex: Male
  Weight: 45 kg

DRUGS (6)
  1. PREZISTA [Concomitant]
     Active Substance: DARUNAVIR ETHANOLATE
     Indication: HIV INFECTION
     Route: 048
  2. ETRAVIRINE [Suspect]
     Active Substance: ETRAVIRINE
     Route: 048
  3. NORVIR [Concomitant]
     Active Substance: RITONAVIR
     Indication: HIV INFECTION
  4. ETRAVIRINE [Suspect]
     Active Substance: ETRAVIRINE
     Indication: HIV INFECTION
     Route: 048
  5. ISENTRESS [Concomitant]
     Active Substance: RALTEGRAVIR POTASSIUM
     Indication: HIV INFECTION
  6. FUZEON [Concomitant]
     Active Substance: ENFUVIRTIDE
     Indication: HIV INFECTION

REACTIONS (1)
  - Blood alkaline phosphatase increased [Unknown]

NARRATIVE: CASE EVENT DATE: 20080215
